FAERS Safety Report 12109012 (Version 3)
Quarter: 2017Q2

REPORT INFORMATION
  Report Type: Spontaneous
  Country: CA (occurrence: CA)
  Receive Date: 20160224
  Receipt Date: 20170418
  Transmission Date: 20170829
  Serious: Yes (Other)
  Sender: FDA-Public Use
  Company Number: CA-ROCHE-1715516

PATIENT
  Age: 43 Year
  Sex: Female
  Weight: 66 kg

DRUGS (1)
  1. XOLAIR [Suspect]
     Active Substance: OMALIZUMAB
     Indication: ASTHMA
     Route: 058
     Dates: start: 20140514

REACTIONS (8)
  - Dyspnoea [Unknown]
  - Respiratory tract infection [Unknown]
  - Bacterial infection [Unknown]
  - Weight decreased [Unknown]
  - Asthma [Unknown]
  - Middle insomnia [Unknown]
  - Wheezing [Unknown]
  - Dyspnoea exertional [Unknown]

NARRATIVE: CASE EVENT DATE: 20170331
